FAERS Safety Report 9714105 (Version 1)
Quarter: 2013Q4

REPORT INFORMATION
  Report Type: Spontaneous
  Country: US (occurrence: US)
  Receive Date: 20131126
  Receipt Date: 20131126
  Transmission Date: 20140711
  Serious: No
  Sender: FDA-Public Use
  Company Number: US-GILEAD-2008-0018866

PATIENT
  Age: 78 Year
  Sex: Female

DRUGS (8)
  1. LETAIRIS [Suspect]
     Indication: COR PULMONALE CHRONIC
     Route: 048
     Dates: start: 20080909, end: 20081028
  2. REVATIO [Concomitant]
     Route: 048
  3. NORVASC [Concomitant]
     Route: 048
  4. COUMADIN [Concomitant]
     Route: 048
  5. LABETALOL [Concomitant]
     Route: 048
  6. SYNTHROID [Concomitant]
     Route: 048
  7. LASIX [Concomitant]
     Route: 048
  8. ALDACTONE [Concomitant]
     Route: 048

REACTIONS (4)
  - Somnolence [Not Recovered/Not Resolved]
  - Somnolence [Not Recovered/Not Resolved]
  - Local swelling [Not Recovered/Not Resolved]
  - Dyspnoea [Not Recovered/Not Resolved]
